FAERS Safety Report 20951485 (Version 1)
Quarter: 2022Q2

REPORT INFORMATION
  Report Type: Spontaneous
  Country: US (occurrence: US)
  Receive Date: 20220613
  Receipt Date: 20220613
  Transmission Date: 20220721
  Serious: Yes (Other)
  Sender: FDA-Public Use
  Company Number: US-PFIZER INC-202200819612

PATIENT
  Age: 64 Year
  Sex: Female
  Weight: 97.52 kg

DRUGS (2)
  1. PAXLOVID [Suspect]
     Active Substance: NIRMATRELVIR\RITONAVIR
     Indication: COVID-19 treatment
     Dosage: 300-100MG PACKAGE, TOOK 3 PILLS EACH DOSE, ONE WHITE PILL AND TWO ROSE COLORED SMALLER PILLS
     Dates: start: 20220531
  2. INSULIN NOS [Concomitant]
     Active Substance: INSULIN NOS
     Indication: Blood glucose abnormal
     Dosage: TAKING FOR AT LEAST 10 YEARS

REACTIONS (13)
  - Ageusia [Recovered/Resolved]
  - Sunburn [Not Recovered/Not Resolved]
  - Erythema [Not Recovered/Not Resolved]
  - Lung disorder [Not Recovered/Not Resolved]
  - Sinus congestion [Not Recovered/Not Resolved]
  - Myalgia [Recovered/Resolved]
  - Flushing [Unknown]
  - COVID-19 [Unknown]
  - Disease recurrence [Unknown]
  - Chest discomfort [Unknown]
  - Infection [Unknown]
  - Dysgeusia [Unknown]
  - Parosmia [Unknown]

NARRATIVE: CASE EVENT DATE: 20220101
